FAERS Safety Report 4279044-9 (Version None)
Quarter: 2004Q1

REPORT INFORMATION
  Report Type: 
  Country: None (occurrence: None)
  Receive Date: 20040122
  Receipt Date: 20040109
  Transmission Date: 20041129
  Serious: Yes (Other)
  Sender: FDA-Public Use
  Company Number: 2003112401

PATIENT
  Age: 68 Year
  Sex: Female

DRUGS (16)
  1. NEURONTIN [Suspect]
     Indication: NEUROPATHY
     Dosage: 200 MG (BID)
     Dates: start: 20030701, end: 20030820
  2. LAMOTRIGINE [Suspect]
     Indication: ILL-DEFINED DISORDER
     Dates: start: 20030501, end: 20030101
  3. ALPRAZOLAM [Concomitant]
  4. PHENELZINE SULFATE (PHENELZINE SULFATE) [Concomitant]
  5. OLANZAPINE [Concomitant]
  6. ESTRADIOL [Concomitant]
  7. CONJUGATED ESTROGENS [Concomitant]
  8. MEDROXYPROGESTERONE ACETATE [Concomitant]
  9. GUAIFENESIN (GUAIFENESIN) [Concomitant]
  10. SERETIDE MITE (FLUTICASONE PROPIONATE, SALMETEROL XINAFOATE) [Concomitant]
  11. IPRATROPIUM BROMIDE [Concomitant]
  12. MACROGOL (MACROGOL) [Concomitant]
  13. DOCUSATE SODIUM (DOCUSATE SODIUM) [Concomitant]
  14. FLUDROCORTISONE ACETATE (FLUDROCORTISONE ACETATE) [Concomitant]
  15. ESOMEPRAZOLE (ESOMEPRAZOLE) [Concomitant]
  16. ACETYLSALICYLIC ACID SRT [Concomitant]

REACTIONS (5)
  - ALANINE AMINOTRANSFERASE INCREASED [None]
  - ASPARTATE AMINOTRANSFERASE INCREASED [None]
  - BIOPSY LIVER ABNORMAL [None]
  - BLOOD ALKALINE PHOSPHATASE INCREASED [None]
  - LIVER FUNCTION TEST ABNORMAL [None]
